FAERS Safety Report 8270100-7 (Version None)
Quarter: 2012Q2

REPORT INFORMATION
  Report Type: 
  Country: None (occurrence: None)
  Receive Date: 20120410
  Receipt Date: 20120329
  Transmission Date: 20120825
  Serious: Yes (Other)
  Sender: FDA-Public Use
  Company Number: PHEH2012US003146

PATIENT
  Sex: Female
  Weight: 143 kg

DRUGS (10)
  1. EXELON [Suspect]
     Route: 062
  2. ARICEPT [Suspect]
     Dosage: 5 MG DAILY
  3. METOPROLOL TARTRATE [Concomitant]
     Dosage: 50 MG, BID
  4. BENICAR [Concomitant]
     Dosage: 40 MG, UNK
  5. METFORMIN HCL [Concomitant]
     Dosage: 750 MG, BID
  6. LIPITOR [Concomitant]
     Dosage: 20 MG, UNK
  7. ASPIRIN [Concomitant]
     Dosage: 81 MG, UNK
  8. VITAMIN B-12 [Concomitant]
     Dosage: 1000 MG, UNK
  9. NOVOLIN 70/30 [Concomitant]
     Dosage: 31UNITS IN THE AM AND 30 IN PM
  10. PLAVIX [Concomitant]
     Dosage: 75 MG, UNK

REACTIONS (9)
  - CONFUSIONAL STATE [None]
  - DYSSTASIA [None]
  - ABDOMINAL DISCOMFORT [None]
  - MEMORY IMPAIRMENT [None]
  - URINARY INCONTINENCE [None]
  - COLD SWEAT [None]
  - BLOOD GLUCOSE INCREASED [None]
  - GAIT DISTURBANCE [None]
  - RETCHING [None]
